FAERS Safety Report 6925099-X (Version None)
Quarter: 2010Q3

REPORT INFORMATION
  Report Type: 
  Country: None (occurrence: None)
  Receive Date: 20100816
  Receipt Date: 20100716
  Transmission Date: 20110219
  Serious: No
  Sender: FDA-Public Use
  Company Number: US-BAYER-201018438BCC

PATIENT
  Age: 17 Month
  Sex: Male
  Weight: 9.072 kg

DRUGS (1)
  1. ALEVE [Suspect]
     Indication: ACCIDENTAL DRUG INTAKE BY CHILD
     Dosage: TOTAL DAILY DOSE: 220 DF  UNIT DOSE: 220 DF
     Route: 048
     Dates: start: 20100716

REACTIONS (1)
  - NO ADVERSE EVENT [None]
